FAERS Safety Report 6577157-X (Version None)
Quarter: 2010Q1

REPORT INFORMATION
  Report Type: 
  Country: None (occurrence: None)
  Receive Date: 20100210
  Receipt Date: 20100128
  Transmission Date: 20100710
  Serious: Yes (Hospitalization)
  Sender: FDA-Public Use
  Company Number: PHHY2010JP05872

PATIENT
  Sex: Female

DRUGS (1)
  1. DIOVAN HCT [Suspect]
     Dosage: UNK
     Dates: start: 20100127, end: 20100127

REACTIONS (2)
  - ACCIDENTAL EXPOSURE [None]
  - URINE OUTPUT INCREASED [None]
